FAERS Safety Report 6117652-0 (Version None)
Quarter: 2009Q1

REPORT INFORMATION
  Report Type: 
  Country: None (occurrence: None)
  Receive Date: 20090314
  Receipt Date: 20090122
  Transmission Date: 20090719
  Serious: No
  Sender: FDA-Public Use
  Company Number: US-ABBOTT-09P-163-0499551-00

PATIENT
  Sex: Female
  Weight: 111.23 kg

DRUGS (5)
  1. HUMIRA [Suspect]
     Indication: PSORIATIC ARTHROPATHY
     Route: 058
     Dates: start: 20081223
  2. HUMIRA [Suspect]
     Indication: SCLERITIS
  3. METFORMIN HCL [Concomitant]
     Indication: DIABETES MELLITUS
  4. LEVOTHYROXINE SODIUM [Concomitant]
     Indication: HYPOTHYROIDISM
  5. AVAPRO [Concomitant]
     Indication: HYPERTENSION

REACTIONS (1)
  - INJECTION SITE IRRITATION [None]
